FAERS Safety Report 10928307 (Version 1)
Quarter: 2015Q1

REPORT INFORMATION
  Report Type: Spontaneous
  Country: US (occurrence: None)
  Receive Date: 20150317
  Receipt Date: 20150317
  Transmission Date: 20150721
  Serious: No
  Sender: FDA-Public Use
  Company Number: None

PATIENT
  Age: 70 Year
  Sex: Male

DRUGS (1)
  1. VELCADE [Suspect]
     Active Substance: BORTEZOMIB
     Indication: PLASMA CELL MYELOMA
     Dates: start: 20140401, end: 20140731

REACTIONS (4)
  - Bone disorder [None]
  - Gait disturbance [None]
  - Unevaluable event [None]
  - Pain [None]

NARRATIVE: CASE EVENT DATE: 20140731
